FAERS Safety Report 5278710-6 (Version None)
Quarter: 2007Q1

REPORT INFORMATION
  Report Type: 
  Country: None (occurrence: None)
  Receive Date: 20070321
  Receipt Date: 20070308
  Transmission Date: 20070707
  Serious: Yes (Death, Hospitalization)
  Sender: FDA-Public Use
  Company Number: 237973

PATIENT
  Age: 63 Year
  Sex: Male
  Weight: 81 kg

DRUGS (9)
  1. MABTHERA(RITUXIMAB) CONC FOR SOLUTION FOR INFUSION [Suspect]
     Indication: VASCULITIS
     Dosage: 700 MG, 1/WEEK
     Dates: start: 20061103, end: 20061124
  2. MABTHERA(RITUXIMAB) CONC FOR SOLUTION FOR INFUSION [Suspect]
  3. MABTHERA(RITUXIMAB) CONC FOR SOLUTION FOR INFUSION [Suspect]
  4. PREDNISONE TAB [Concomitant]
  5. PHENPROCOUMON (PHENPROCOUMON) [Concomitant]
  6. ESOMEPRAZOLE (ESOMEPRAZOLE MAGNESIUM) [Concomitant]
  7. CALCIUM (CALCIUM NOS) [Concomitant]
  8. VITAMIN D3 (CHOLECALCIFEROL) [Concomitant]
  9. AMLODIPINE BESYLATE [Concomitant]

REACTIONS (2)
  - ARTERIOSCLEROSIS CORONARY ARTERY [None]
  - PNEUMOCYSTIS JIROVECI PNEUMONIA [None]
